FAERS Safety Report 7539050-5 (Version None)
Quarter: 2011Q2

REPORT INFORMATION
  Report Type: 
  Country: None (occurrence: None)
  Receive Date: 20110610
  Receipt Date: 20010810
  Transmission Date: 20111010
  Serious: Yes (Death)
  Sender: FDA-Public Use
  Company Number: PHBS2001CA08181

PATIENT
  Sex: Male

DRUGS (3)
  1. PAXIL [Concomitant]
  2. CLOZAPINE [Suspect]
     Route: 048
     Dates: start: 19951120, end: 20010719
  3. LORAZEPAM [Concomitant]

REACTIONS (2)
  - MYOCARDIAL INFARCTION [None]
  - FALL [None]
